FAERS Safety Report 24448872 (Version 1)
Quarter: 2024Q4

REPORT INFORMATION
  Report Type: Spontaneous
  Country: GB (occurrence: GB)
  Receive Date: 20241017
  Receipt Date: 20241017
  Transmission Date: 20250114
  Serious: Yes (Other)
  Sender: ABBVIE
  Company Number: None

PATIENT
  Age: 44 Year
  Sex: Female

DRUGS (2)
  1. LUPRON DEPOT [Suspect]
     Active Substance: LEUPROLIDE ACETATE
     Indication: Adverse drug reaction
     Dosage: 3.7 MILLIGRAM
     Route: 065
     Dates: start: 20240916
  2. TIBOLONE [Suspect]
     Active Substance: TIBOLONE
     Indication: Adverse drug reaction
     Dosage: 2.5 MILLIGRAM, QD
     Route: 065
     Dates: start: 20240919

REACTIONS (6)
  - Herpes zoster [Unknown]
  - Axillary pain [Unknown]
  - Blister infected [Unknown]
  - Arthralgia [Unknown]
  - Breast pain [Unknown]
  - Erythema [Unknown]

NARRATIVE: CASE EVENT DATE: 20240101
